FAERS Safety Report 5452201-1 (Version None)
Quarter: 2007Q3

REPORT INFORMATION
  Report Type: 
  Country: None (occurrence: None)
  Receive Date: 20070914
  Receipt Date: 20070907
  Transmission Date: 20080115
  Serious: Yes (Other)
  Sender: FDA-Public Use
  Company Number: PHEH2007US12140

PATIENT
  Age: 49 Year
  Sex: Female

DRUGS (1)
  1. LOTENSIN [Suspect]
     Indication: HYPERTENSION
     Dosage: UNK, BID
     Route: 048

REACTIONS (1)
  - CARDIAC OPERATION [None]
